FAERS Safety Report 10010334 (Version 2)
Quarter: 2014Q1

REPORT INFORMATION
  Report Type: Spontaneous
  Country: US (occurrence: US)
  Receive Date: 20140313
  Receipt Date: 20140313
  Transmission Date: 20141002
  Serious: Yes (Life-Threatening, Hospitalization)
  Sender: FDA-Public Use
  Company Number: 2014SP001051

PATIENT
  Age: 74 Year
  Sex: Female
  Weight: 64 kg

DRUGS (8)
  1. FLUOROURACIL [Suspect]
     Indication: ADENOCARCINOMA OF COLON
     Route: 042
     Dates: start: 20140115, end: 20140115
  2. FLUOROURACIL [Suspect]
     Indication: ADENOCARCINOMA OF COLON
     Route: 042
     Dates: start: 20140115
  3. FLUOROURACIL [Suspect]
     Indication: ADENOCARCINOMA OF COLON
     Dates: start: 20131016
  4. ELOXATIN [Suspect]
     Indication: ADENOCARCINOMA OF COLON
     Route: 042
     Dates: start: 20140115, end: 20140115
  5. ELOXATIN [Suspect]
     Indication: ADENOCARCINOMA OF COLON
     Dates: start: 20131016
  6. CELEBREX [Suspect]
     Indication: ADENOCARCINOMA OF COLON
     Route: 048
     Dates: start: 20140115, end: 20140115
  7. CELEBREX [Suspect]
     Indication: ADENOCARCINOMA OF COLON
     Dates: start: 20131016
  8. CALCIUM FOLINATE [Concomitant]
     Indication: ADENOCARCINOMA OF COLON
     Route: 042
     Dates: start: 20131016

REACTIONS (10)
  - Respiratory failure [Unknown]
  - Hypoxia [Unknown]
  - Sepsis [Unknown]
  - Cholecystitis [Unknown]
  - Nausea [Unknown]
  - Constipation [Unknown]
  - Small intestinal obstruction [Unknown]
  - Renal failure acute [Unknown]
  - Pneumonia aspiration [Unknown]
  - Atrial fibrillation [Unknown]
